FAERS Safety Report 9087506 (Version 1)
Quarter: 2013Q1

REPORT INFORMATION
  Report Type: Spontaneous
  Country: US (occurrence: US)
  Receive Date: 20130201
  Receipt Date: 20130201
  Transmission Date: 20140127
  Serious: Yes (Hospitalization)
  Sender: FDA-Public Use
  Company Number: US-BAYER-2013-012106

PATIENT
  Age: 17 Year
  Sex: Female

DRUGS (8)
  1. YASMIN [Suspect]
  2. FLAGYL [Concomitant]
     Route: 042
  3. FLAGYL [Concomitant]
     Route: 048
  4. LEVAQUIN [Concomitant]
     Route: 042
  5. LEVAQUIN [Concomitant]
     Route: 048
  6. COLACE [Concomitant]
  7. PERCOCET [Concomitant]
  8. COMPAZINE [Concomitant]

REACTIONS (2)
  - Deep vein thrombosis [None]
  - Pelvic venous thrombosis [None]
